FAERS Safety Report 16866175 (Version 1)
Quarter: 2019Q3

REPORT INFORMATION
  Report Type: Spontaneous
  Country: US (occurrence: US)
  Receive Date: 20190805
  Receipt Date: 20190805
  Transmission Date: 20191005
  Serious: Yes (Other)
  Sender: FDA-Public Use
  Company Number: None

PATIENT
  Age: 49 Year
  Sex: Female

DRUGS (2)
  1. INSULIN GLARGINE [Suspect]
     Active Substance: INSULIN GLARGINE
  2. INSULIN LISPRO [Suspect]
     Active Substance: INSULIN LISPRO

REACTIONS (3)
  - Fracture [None]
  - Blood glucose decreased [None]
  - Fall [None]

NARRATIVE: CASE EVENT DATE: 20180122
